FAERS Safety Report 4433356-4 (Version None)
Quarter: 2004Q3

REPORT INFORMATION
  Report Type: 
  Country: None (occurrence: None)
  Receive Date: 20040824
  Receipt Date: 20040817
  Transmission Date: 20050211
  Serious: Yes (Hospitalization)
  Sender: FDA-Public Use
  Company Number: 2003IM001285

PATIENT
  Age: 53 Year
  Sex: Female

DRUGS (2)
  1. INFERAX (INTERFERON ALFACON-1) [Suspect]
     Indication: HEPATITIS C
     Dosage: 1 UNK;TIW;SUBCUTANEOUS
     Route: 058
     Dates: start: 20030201
  2. RIBAVIRIN [Suspect]
     Indication: HEPATITIS C
     Dosage: 600 MG; ORAL
     Route: 048
     Dates: start: 20030201

REACTIONS (8)
  - APHASIA [None]
  - CAROTID ARTERY ATHEROMA [None]
  - DISTURBANCE IN ATTENTION [None]
  - HEADACHE [None]
  - MEMORY IMPAIRMENT [None]
  - NEUROLOGICAL EXAMINATION ABNORMAL [None]
  - SPEECH DISORDER [None]
  - VERTIGO [None]
